FAERS Safety Report 17982721 (Version 4)
Quarter: 2020Q3

REPORT INFORMATION
  Report Type: Spontaneous
  Country: JP (occurrence: JP)
  Receive Date: 20200706
  Receipt Date: 20200915
  Transmission Date: 20201103
  Serious: Yes (Other)
  Sender: FDA-Public Use
  Company Number: NVSJ2020JP006264

PATIENT
  Age: 70 Year
  Sex: Female

DRUGS (21)
  1. NEORAL [Suspect]
     Active Substance: CYCLOSPORINE
     Dosage: 160 MG
     Route: 048
     Dates: start: 20190419, end: 20190502
  2. REVOLADE [Concomitant]
     Active Substance: ELTROMBOPAG
     Dosage: 37.5 MG
     Route: 048
     Dates: start: 20200604, end: 20200612
  3. THYMOGLOBULINE [Concomitant]
     Active Substance: LAPINE T-LYMPHOCYTE IMMUNE GLOBULIN
     Indication: APLASTIC ANAEMIA
     Dosage: 150 MG
     Route: 065
     Dates: start: 20190327, end: 20190330
  4. SOLU?MEDROL [Concomitant]
     Active Substance: METHYLPREDNISOLONE SODIUM SUCCINATE
     Indication: APLASTIC ANAEMIA
     Dosage: 125 MG
     Route: 065
     Dates: start: 20190327, end: 20190330
  5. ARGAMATE [Suspect]
     Active Substance: CALCIUM POLYSTYRENE SULFONATE
     Indication: HYPERKALAEMIA
     Dosage: UNK
     Route: 065
     Dates: start: 20190829, end: 20200604
  6. RED BLOOD CELLS, CONCENTRATED [Concomitant]
     Active Substance: HUMAN RED BLOOD CELL
     Dosage: 400 ML/MONTH
     Route: 065
     Dates: start: 20190507, end: 20190603
  7. RED BLOOD CELLS, CONCENTRATED [Concomitant]
     Active Substance: HUMAN RED BLOOD CELL
     Indication: PRODUCT USED FOR UNKNOWN INDICATION
     Dosage: 800 ML/MONTH
     Route: 065
     Dates: start: 20190312, end: 20190408
  8. NEORAL [Suspect]
     Active Substance: CYCLOSPORINE
     Dosage: 40 MG
     Route: 048
     Dates: start: 20191219, end: 20200213
  9. PLATELETS [Concomitant]
     Active Substance: HUMAN PLATELET, ALLOGENIC
     Dosage: 600 ML/MONTH
     Route: 065
     Dates: start: 20190409, end: 20190506
  10. NEORAL [Suspect]
     Active Substance: CYCLOSPORINE
     Dosage: 200 MG
     Route: 048
     Dates: start: 20190412, end: 20190418
  11. NEORAL [Suspect]
     Active Substance: CYCLOSPORINE
     Dosage: 200 MG
     Route: 048
     Dates: start: 20190503, end: 20190729
  12. NEORAL [Suspect]
     Active Substance: CYCLOSPORINE
     Dosage: 140 MG
     Route: 048
     Dates: start: 20190830, end: 20191023
  13. NEORAL [Suspect]
     Active Substance: CYCLOSPORINE
     Dosage: 100 MG
     Route: 048
     Dates: start: 20191024, end: 20191218
  14. PLATELETS [Concomitant]
     Active Substance: HUMAN PLATELET, ALLOGENIC
     Indication: PRODUCT USED FOR UNKNOWN INDICATION
     Dosage: 800 ML/MONTH
     Route: 065
     Dates: start: 20190312, end: 20190408
  15. NEORAL [Suspect]
     Active Substance: CYCLOSPORINE
     Indication: APLASTIC ANAEMIA
     Dosage: 300 MG
     Route: 048
     Dates: start: 20190327, end: 20190329
  16. REVOLADE [Concomitant]
     Active Substance: ELTROMBOPAG
     Dosage: 50.0 MG
     Route: 048
     Dates: start: 20200409, end: 20200603
  17. RED BLOOD CELLS, CONCENTRATED [Concomitant]
     Active Substance: HUMAN RED BLOOD CELL
     Dosage: 400 ML/MONTH
     Route: 065
     Dates: start: 20190409, end: 20190506
  18. NEORAL [Suspect]
     Active Substance: CYCLOSPORINE
     Dosage: 20 MG
     Route: 048
     Dates: start: 20200214
  19. REVOLADE [Concomitant]
     Active Substance: ELTROMBOPAG
     Indication: APLASTIC ANAEMIA
     Dosage: 75.0 MG
     Route: 048
     Dates: start: 20190409, end: 20200408
  20. NEORAL [Suspect]
     Active Substance: CYCLOSPORINE
     Dosage: 200 MG
     Route: 048
     Dates: start: 20190330, end: 20190408
  21. NEORAL [Suspect]
     Active Substance: CYCLOSPORINE
     Dosage: 300 MG
     Route: 048
     Dates: start: 20190409, end: 20190411

REACTIONS (4)
  - Hyperkalaemia [Recovered/Resolved]
  - Constipation [Recovered/Resolved]
  - Product use in unapproved indication [Unknown]
  - Renal impairment [Recovering/Resolving]

NARRATIVE: CASE EVENT DATE: 20190530
